FAERS Safety Report 4864109-0 (Version None)
Quarter: 2005Q4

REPORT INFORMATION
  Report Type: 
  Country: None (occurrence: None)
  Receive Date: 20051222
  Receipt Date: 20051215
  Transmission Date: 20060501
  Serious: Yes (Other)
  Sender: FDA-Public Use
  Company Number: CA-GLAXOSMITHKLINE-A0586543A

PATIENT
  Sex: Female

DRUGS (1)
  1. PAXIL [Suspect]
     Indication: ANXIETY
     Dosage: 25MG PER DAY
     Route: 048

REACTIONS (17)
  - ALOPECIA [None]
  - ANOREXIA [None]
  - ASTHENIA [None]
  - CRYING [None]
  - DIARRHOEA [None]
  - HEARING IMPAIRED [None]
  - HYPERHIDROSIS [None]
  - HYPOAESTHESIA [None]
  - IMPAIRED DRIVING ABILITY [None]
  - NAUSEA [None]
  - PAIN [None]
  - PRURITUS [None]
  - SELF MUTILATION [None]
  - SKIN DISORDER [None]
  - SLEEP DISORDER [None]
  - SUICIDAL IDEATION [None]
  - WEIGHT INCREASED [None]
